FAERS Safety Report 9970151 (Version 1)
Quarter: 2014Q1

REPORT INFORMATION
  Report Type: Spontaneous
  Country: NL (occurrence: None)
  Receive Date: 20140304
  Receipt Date: 20140304
  Transmission Date: 20141002
  Serious: Yes (Hospitalization)
  Sender: FDA-Public Use
  Company Number: B0973248A

PATIENT
  Age: 84 Year
  Sex: Female

DRUGS (2)
  1. PAROXETINE HYDROCHLORIDE (FORMULATION UNKNOWN) (PAROXETINE HYDROCHLORIDE) [Suspect]
     Indication: ANXIETY DISORDER
     Route: 048
     Dates: start: 20140131, end: 20140214
  2. MOVICOLON [Concomitant]

REACTIONS (1)
  - Inappropriate antidiuretic hormone secretion [None]
